FAERS Safety Report 21668171 (Version 1)
Quarter: 2022Q4

REPORT INFORMATION
  Report Type: Report from Study
  Country: US (occurrence: US)
  Receive Date: 20221201
  Receipt Date: 20221201
  Transmission Date: 20230113
  Serious: Yes (Other)
  Sender: FDA-Public Use
  Company Number: US-ABBVIE-4216737

PATIENT
  Age: 32 Year
  Sex: Male

DRUGS (1)
  1. HUMIRA [Suspect]
     Active Substance: ADALIMUMAB
     Indication: Psoriasis
     Dosage: CITRATE FREE
     Route: 058

REACTIONS (8)
  - Femur fracture [Recovered/Resolved]
  - Influenza [Not Recovered/Not Resolved]
  - Multiple allergies [Unknown]
  - Accident [Unknown]
  - Injection site bruising [Recovered/Resolved]
  - Scar [Not Recovered/Not Resolved]
  - Wound complication [Unknown]
  - Procedural haemorrhage [Unknown]

NARRATIVE: CASE EVENT DATE: 20211120
